FAERS Safety Report 8797359 (Version 2)
Quarter: 2012Q4

REPORT INFORMATION
  Report Type: 
  Country: US (occurrence: US)
  Receive Date: 20120920
  Receipt Date: 20121016
  Transmission Date: 20130627
  Serious: No
  Sender: FDA-Public Use
  Company Number: US-PFIZER INC-2012228506

PATIENT
  Age: 31 Year
  Sex: Female
  Weight: 48.98 kg

DRUGS (1)
  1. AZITHROMYCIN [Suspect]
     Indication: SINUSITIS
     Dosage: 500 mg, 1x/day for 10 days
     Route: 048
     Dates: start: 201208, end: 201208

REACTIONS (1)
  - Drug ineffective [Unknown]
